FAERS Safety Report 7959114-1 (Version None)
Quarter: 2011Q4

REPORT INFORMATION
  Report Type: 
  Country: None (occurrence: None)
  Receive Date: 20111206
  Receipt Date: 20111129
  Transmission Date: 20120403
  Serious: Yes (Hospitalization)
  Sender: FDA-Public Use
  Company Number: JP-B.I. PHARMACEUTICALS,INC./RIDGEFIELD-2011-BP-27025NB

PATIENT
  Age: 90 Year
  Sex: Male

DRUGS (11)
  1. BI-SIFROL TABLETS [Suspect]
     Dosage: 0.25 MG
     Route: 065
     Dates: start: 20111018, end: 20111126
  2. MAGNESIUM SULFATE [Concomitant]
     Indication: CONSTIPATION
     Dosage: 1000 MG
     Route: 048
  3. BI-SIFROL TABLETS [Suspect]
     Indication: FREEZING PHENOMENON
     Dosage: 0.125 MG
     Route: 048
  4. NORVASC [Concomitant]
     Indication: HYPERTENSION
     Dosage: 2.5 MG
     Route: 048
  5. BESOFTEN [Concomitant]
     Indication: DRY SKIN
     Route: 065
  6. SYMMETREL [Concomitant]
     Indication: FREEZING PHENOMENON
     Dosage: 200 MG
     Route: 048
     Dates: start: 20110906
  7. ALOSENN [Concomitant]
     Indication: CONSTIPATION
     Dosage: 0.5 G
     Route: 048
  8. PRORENAL [Concomitant]
     Indication: FREEZING PHENOMENON
     Dosage: 15 MCG
     Route: 048
     Dates: start: 20111115
  9. ONEALFA [Concomitant]
     Indication: OSTEOPOROSIS
     Dosage: 1 MCG
     Route: 048
  10. FLIVAS OD [Concomitant]
     Indication: DYSURIA
     Dosage: 50 MG
     Route: 048
  11. BLADDERON [Concomitant]
     Indication: DYSURIA
     Dosage: 200 MG
     Route: 048

REACTIONS (2)
  - NEUROLEPTIC MALIGNANT SYNDROME [None]
  - DIZZINESS [None]
